FAERS Safety Report 9333106 (Version 1)
Quarter: 2013Q2

REPORT INFORMATION
  Report Type: Spontaneous
  Country: US (occurrence: US)
  Receive Date: 20130606
  Receipt Date: 20130606
  Transmission Date: 20140414
  Serious: Yes (Hospitalization)
  Sender: FDA-Public Use
  Company Number: US-AMGEN-USASP2013033083

PATIENT
  Sex: Female
  Weight: 67 kg

DRUGS (6)
  1. PROLIA [Suspect]
     Indication: OSTEOPOROSIS POSTMENOPAUSAL
     Dosage: 60 MG, UNK
     Route: 030
     Dates: start: 20130424
  2. HYDRALAZINE [Concomitant]
     Indication: HYPERTENSION
     Dosage: 10 MG, QID
     Route: 048
  3. VICODIN [Concomitant]
     Indication: PAIN
     Dosage: 5 MG, AS NECESSARY
     Route: 048
  4. VITAMIN D                          /00107901/ [Concomitant]
     Indication: VITAMIN D DEFICIENCY
     Dosage: 1000 IU, QD
     Route: 048
  5. DOXEPIN                            /00138002/ [Concomitant]
     Indication: INSOMNIA
     Dosage: UNK UNK, QHS
     Route: 048
  6. CYMBALTA [Concomitant]
     Indication: AFFECTIVE DISORDER
     Dosage: 60 MG, QD
     Route: 048

REACTIONS (5)
  - Gait disturbance [Recovered/Resolved]
  - Asthenia [Unknown]
  - Hypocalcaemia [Recovered/Resolved]
  - Hyperparathyroidism [Unknown]
  - Incorrect route of drug administration [Unknown]
